FAERS Safety Report 5872577-0 (Version None)
Quarter: 2008Q3

REPORT INFORMATION
  Report Type: 
  Country: None (occurrence: None)
  Receive Date: 20080905
  Receipt Date: 20080904
  Transmission Date: 20090109
  Serious: Yes (Hospitalization)
  Sender: FDA-Public Use
  Company Number: CA-WYE-G01464708

PATIENT
  Sex: Female
  Weight: 56.7 kg

DRUGS (10)
  1. TACROLIMUS [Suspect]
     Indication: PROPHYLAXIS AGAINST TRANSPLANT REJECTION
     Route: 048
     Dates: start: 20071111
  2. ATORVASTATIN CALCIUM [Concomitant]
     Indication: DYSLIPIDAEMIA
     Route: 048
     Dates: start: 20080206
  3. OMEPRAZOLE [Concomitant]
     Indication: PROPHYLAXIS
     Route: 048
     Dates: start: 20070101
  4. VALCYTE [Concomitant]
     Indication: PROPHYLAXIS
     Dosage: 450 MG EVERY
     Route: 048
     Dates: start: 20071130
  5. FERROUS SULFATE TAB [Concomitant]
     Indication: ANAEMIA
     Route: 048
     Dates: start: 20080129
  6. CALCIUM [Concomitant]
     Indication: MINERAL SUPPLEMENTATION
     Route: 048
     Dates: start: 20080104
  7. ONE-ALPHA [Concomitant]
     Indication: VITAMIN SUPPLEMENTATION
     Dosage: .5 UL EVERY
     Route: 048
     Dates: start: 20071129
  8. SEPTRA DS [Concomitant]
     Indication: PROPHYLAXIS
     Dosage: .5 TABLET EVERY
     Route: 048
     Dates: start: 20071204
  9. CELLCEPT [Suspect]
     Indication: PROPHYLAXIS AGAINST TRANSPLANT REJECTION
     Route: 048
     Dates: start: 20071111
  10. PREDNISONE TAB [Suspect]
     Indication: PROPHYLAXIS AGAINST TRANSPLANT REJECTION
     Route: 048
     Dates: start: 20080208

REACTIONS (2)
  - ABDOMINAL PAIN [None]
  - LYMPHOCELE [None]
